FAERS Safety Report 10137093 (Version 1)
Quarter: 2014Q2

REPORT INFORMATION
  Report Type: Spontaneous
  Country: US (occurrence: None)
  Receive Date: 20140428
  Receipt Date: 20140428
  Transmission Date: 20141212
  Serious: No
  Sender: FDA-Public Use
  Company Number: None

PATIENT
  Age: 30 Year
  Sex: Female

DRUGS (1)
  1. FANAPT [Suspect]
     Indication: SCHIZOPHRENIA
     Route: 048
     Dates: start: 20140422

REACTIONS (2)
  - Palpitations [None]
  - Chest pain [None]
